FAERS Safety Report 21369359 (Version 1)
Quarter: 2022Q3

REPORT INFORMATION
  Report Type: Spontaneous
  Country: US (occurrence: None)
  Receive Date: 20220922
  Receipt Date: 20220922
  Transmission Date: 20221026
  Serious: Yes (Hospitalization)
  Sender: FDA-Public Use
  Company Number: None

PATIENT
  Age: 29 Year
  Sex: Male
  Weight: 60.75 kg

DRUGS (9)
  1. TEMOZOLOMIDE [Suspect]
     Active Substance: TEMOZOLOMIDE
     Dosage: FREQUENCY : DAILY;?
     Route: 048
     Dates: start: 20220801, end: 20220815
  2. DIPHENHYDRAMINE HYDROCHLORIDE\LIDOCAINE HYDROCHLORIDE\NYSTATIN [Concomitant]
     Active Substance: DIPHENHYDRAMINE HYDROCHLORIDE\LIDOCAINE HYDROCHLORIDE\NYSTATIN
  3. DEXAMETHASONE [Concomitant]
     Active Substance: DEXAMETHASONE
  4. DIVALPROEX DR [Concomitant]
  5. DRONABINOL [Concomitant]
  6. GLEOSTINE [Concomitant]
     Active Substance: LOMUSTINE
  7. HYDROCODONE/ACETAMINOPHEN [Concomitant]
  8. LEVETIRACETAM [Concomitant]
  9. OXCARBAZEPPINE [Concomitant]

REACTIONS (2)
  - Stomatitis [None]
  - Dysphagia [None]

NARRATIVE: CASE EVENT DATE: 20220815
